FAERS Safety Report 5127252-7 (Version None)
Quarter: 2006Q4

REPORT INFORMATION
  Report Type: 
  Country: None (occurrence: None)
  Receive Date: 20061010
  Receipt Date: 20060925
  Transmission Date: 20070319
  Serious: Yes (Hospitalization)
  Sender: FDA-Public Use
  Company Number: 2006RR-03882

PATIENT
  Sex: Female

DRUGS (4)
  1. CLARITHROMYCIN [Suspect]
     Dosage: 250 MG, BID
  2. LAMOTRIGINE [Suspect]
     Dosage: 200 MG, BID, ORAL; SEE IMAGE
     Route: 048
  3. IBUPROFEN [Concomitant]
  4. MICRONOR [Concomitant]

REACTIONS (2)
  - CONVULSION [None]
  - DRUG INTERACTION [None]
